APPROVED DRUG PRODUCT: DUREZOL
Active Ingredient: DIFLUPREDNATE
Strength: 0.05%
Dosage Form/Route: EMULSION;OPHTHALMIC
Application: N022212 | Product #001 | TE Code: AB
Applicant: SANDOZ INC
Approved: Jun 23, 2008 | RLD: Yes | RS: Yes | Type: RX